FAERS Safety Report 5265072-3 (Version None)
Quarter: 2007Q1

REPORT INFORMATION
  Report Type: 
  Country: None (occurrence: None)
  Receive Date: 20061122
  Receipt Date: 20051115
  Transmission Date: 20070707
  Serious: Yes (Other)
  Sender: FDA-Public Use
  Company Number: 2006MP001092

PATIENT
  Age: 50 Year
  Sex: Male

DRUGS (3)
  1. GLIADEL [Suspect]
     Indication: MALIGNANT GLIOMA
     Dosage: ICER
     Dates: start: 20051110
  2. ANTICONVULSANT [Concomitant]
  3. CORTICOSTEROIDS [Concomitant]

REACTIONS (1)
  - CEREBRAL INFARCTION [None]
